FAERS Safety Report 16589335 (Version 2)
Quarter: 2019Q4

REPORT INFORMATION
  Report Type: Report from Study
  Country: US (occurrence: US)
  Receive Date: 20190718
  Receipt Date: 20191220
  Transmission Date: 20200122
  Serious: Yes (Hospitalization, Other)
  Sender: FDA-Public Use
  Company Number: PHEH2019US029598

PATIENT
  Sex: Female

DRUGS (2)
  1. GILENYA [Suspect]
     Active Substance: FINGOLIMOD HYDROCHLORIDE
     Indication: MULTIPLE SCLEROSIS
     Dosage: 0.5 MG, QD
     Route: 048
     Dates: end: 20190709
  2. GILENYA [Suspect]
     Active Substance: FINGOLIMOD HYDROCHLORIDE
     Route: 048

REACTIONS (4)
  - Tongue neoplasm malignant stage unspecified [Recovering/Resolving]
  - Neuroma [Unknown]
  - Tongue disorder [Unknown]
  - Lymphoma [Unknown]
